FAERS Safety Report 9168572 (Version 1)
Quarter: 2013Q1

REPORT INFORMATION
  Report Type: Spontaneous
  Country: US (occurrence: None)
  Receive Date: 20130314
  Receipt Date: 20130314
  Transmission Date: 20140127
  Serious: Yes (Hospitalization)
  Sender: FDA-Public Use
  Company Number: None

PATIENT
  Age: 22 Year
  Sex: Female
  Weight: 77 kg

DRUGS (1)
  1. BOCEPREVIR [Suspect]
     Indication: HEPATITIS C
     Dates: start: 20130101, end: 20130226

REACTIONS (2)
  - Aplastic anaemia [None]
  - Bone marrow failure [None]
